FAERS Safety Report 5819775-X (Version None)
Quarter: 2008Q3

REPORT INFORMATION
  Report Type: 
  Country: None (occurrence: None)
  Receive Date: 20080723
  Receipt Date: 20080711
  Transmission Date: 20090109
  Serious: Yes (Hospitalization, Other)
  Sender: FDA-Public Use
  Company Number: US-PFIZER INC-2008059360

PATIENT
  Sex: Male
  Weight: 108.5 kg

DRUGS (5)
  1. LYRICA [Suspect]
     Indication: MULTIPLE SCLEROSIS
     Route: 048
  2. LYRICA [Suspect]
     Indication: PAIN
  3. ATENOLOL [Concomitant]
  4. LISINOPRIL [Concomitant]
  5. XOPENEX [Concomitant]

REACTIONS (4)
  - AGITATION [None]
  - DRUG DOSE OMISSION [None]
  - HOMICIDAL IDEATION [None]
  - MYOCARDIAL INFARCTION [None]
